FAERS Safety Report 7620310-4 (Version None)
Quarter: 2011Q3

REPORT INFORMATION
  Report Type: 
  Country: None (occurrence: None)
  Receive Date: 20110719
  Receipt Date: 20110707
  Transmission Date: 20111222
  Serious: Yes (Death, Hospitalization)
  Sender: FDA-Public Use
  Company Number: US-JNJFOC-20110304623

PATIENT
  Sex: Female

DRUGS (1)
  1. STELARA [Suspect]
     Indication: PSORIASIS
     Route: 058
     Dates: start: 20100210, end: 20101001

REACTIONS (4)
  - STAPHYLOCOCCAL SEPSIS [None]
  - URINARY TRACT INFECTION PSEUDOMONAL [None]
  - PNEUMONIA STAPHYLOCOCCAL [None]
  - RENAL FAILURE ACUTE [None]
